FAERS Safety Report 19760444 (Version 2)
Quarter: 2021Q3

REPORT INFORMATION
  Report Type: Spontaneous
  Country: CN (occurrence: CN)
  Receive Date: 20210830
  Receipt Date: 20210831
  Transmission Date: 20211014
  Serious: Yes (Hospitalization)
  Sender: FDA-Public Use
  Company Number: CN-009507513-2108CHN006350

PATIENT
  Age: 75 Year
  Sex: Male
  Weight: 66 kg

DRUGS (1)
  1. TIENAM [Suspect]
     Active Substance: CILASTATIN SODIUM\IMIPENEM
     Indication: CENTRAL NERVOUS SYSTEM INFECTION
     Dosage: DOSE: 1 G , FREQUENCY: EVERY 8 HOURS (Q8H)
     Route: 041
     Dates: start: 20210308, end: 20210316

REACTIONS (9)
  - Aggression [Recovering/Resolving]
  - Condition aggravated [Unknown]
  - Irritability [Recovering/Resolving]
  - Treatment noncompliance [Unknown]
  - Disorganised speech [Recovering/Resolving]
  - Incontinence [Recovering/Resolving]
  - Mental disorder [Recovering/Resolving]
  - Product use in unapproved indication [Unknown]
  - Asthenia [Recovering/Resolving]

NARRATIVE: CASE EVENT DATE: 2021
